FAERS Safety Report 9921283 (Version 1)
Quarter: 2014Q1

REPORT INFORMATION
  Report Type: Spontaneous
  Country: US (occurrence: None)
  Receive Date: 20140221
  Receipt Date: 20140221
  Transmission Date: 20141002
  Serious: Yes (Hospitalization)
  Sender: FDA-Public Use
  Company Number: None

PATIENT
  Age: 83 Year
  Sex: Male
  Weight: 96.1 kg

DRUGS (1)
  1. AMITRIPTYLINE [Suspect]
     Indication: SLEEP DISORDER
     Route: 048
     Dates: start: 19950616, end: 20140215

REACTIONS (1)
  - Syncope [None]
